FAERS Safety Report 23640700 (Version 1)
Quarter: 2024Q1

REPORT INFORMATION
  Report Type: Spontaneous
  Country: US (occurrence: US)
  Receive Date: 20240318
  Receipt Date: 20240318
  Transmission Date: 20240409
  Serious: No
  Sender: FDA-Public Use
  Company Number: US-SANDOZ-SDZ2023US067064

PATIENT
  Sex: Female

DRUGS (1)
  1. ALBUTEROL SULFATE [Suspect]
     Active Substance: ALBUTEROL SULFATE
     Indication: Chronic obstructive pulmonary disease
     Dosage: ONE PUFF WAS STARTING DOSE, THIS MONTH SHE IS  DOING TWO PUFFS, THREE OR FOUR TIMES A DAY
     Route: 065

REACTIONS (2)
  - Product dose omission issue [Unknown]
  - Device difficult to use [Unknown]
